FAERS Safety Report 4639200-4 (Version None)
Quarter: 2005Q2

REPORT INFORMATION
  Report Type: 
  Country: None (occurrence: None)
  Receive Date: 20050418
  Receipt Date: 20050407
  Transmission Date: 20051028
  Serious: No
  Sender: FDA-Public Use
  Company Number: 2005AP00728

PATIENT
  Age: 15 Year
  Sex: Female

DRUGS (7)
  1. MEROPEN [Suspect]
     Indication: BRAIN ABSCESS
     Dates: start: 20040601
  2. CEFAZOLIN SODIUM [Concomitant]
  3. VANCOMYCIN [Concomitant]
  4. ACYCLOVIR [Concomitant]
  5. GENTAMICIN SULFATE [Concomitant]
  6. AMPICILLIN [Concomitant]
  7. CLINDAMYCIN PHOSPHATE [Concomitant]

REACTIONS (1)
  - INTERSTITIAL LUNG DISEASE [None]
